FAERS Safety Report 9778040 (Version 3)
Quarter: 2014Q1

REPORT INFORMATION
  Report Type: Spontaneous
  Country: NO (occurrence: NO)
  Receive Date: 20131223
  Receipt Date: 20140218
  Transmission Date: 20141002
  Serious: Yes (Other)
  Sender: FDA-Public Use
  Company Number: NO-ACCORD-020785

PATIENT
  Age: 17 Year
  Sex: Female

DRUGS (5)
  1. ETOPOSIDE [Suspect]
     Indication: OSTEOSARCOMA METASTATIC
     Dosage: MODIFIED EURAMOS-1 REGIMEN, 500MG/SQ.M/COURSE AT TOTAL DOSE 2000 MG/SQ.M
  2. METHOTREXATE [Suspect]
     Indication: OSTEOSARCOMA METASTATIC
     Dosage: MODIFIED EURAMOS-1 REGIMEN, 12G/SQ.M/COURSE AT TOTAL DOSE 24000 MG/SQ.M
  3. CISPLATIN [Suspect]
     Indication: OSTEOSARCOMA METASTATIC
     Dosage: MODIFIED EURAMOS-1 REGIMEN, 120MG/SQ.M/COURSE AT TOTAL DOSE 580 MG/SQ.M
  4. DOXORUBICIN [Suspect]
     Indication: OSTEOSARCOMA METASTATIC
     Dosage: MODIFIED EURAMOS-1 REGIMEN, 75MG/SQ.M/COURSE AT TOTAL DOSE 450 MG/SQ.M
  5. IFOSFAMIDE [Suspect]
     Indication: OSTEOSARCOMA METASTATIC
     Dosage: MODIFIED EURAMOS-1 REGIMEN, 14G/M2/COURSE; 9G/M2/COURSE; 6G/M2/COURSE AT TOTAL DOSE 77200 MG/M2

REACTIONS (5)
  - Rash [Unknown]
  - Febrile neutropenia [Unknown]
  - Thrombocytopenia [Unknown]
  - Disease progression [Unknown]
  - Pulmonary toxicity [Recovering/Resolving]
